FAERS Safety Report 9006683 (Version 2)
Quarter: 2013Q1

REPORT INFORMATION
  Report Type: Spontaneous
  Country: US (occurrence: US)
  Receive Date: 20130110
  Receipt Date: 20130122
  Transmission Date: 20140127
  Serious: Yes (Death)
  Sender: FDA-Public Use
  Company Number: US-PFIZER INC-2013006530

PATIENT
  Age: 42 Year
  Sex: Female

DRUGS (7)
  1. LEVOTHYROXINE SODIUM [Suspect]
     Dosage: UNK
     Route: 048
  2. QUETIAPINE [Suspect]
     Dosage: UNK
     Route: 048
  3. HYDROXYZINE [Suspect]
     Dosage: UNK
     Route: 048
  4. CITALOPRAM [Suspect]
     Dosage: UNK
     Route: 048
  5. ESCITALOPRAM [Suspect]
     Route: 048
  6. BUSPIRONE [Suspect]
     Route: 048
  7. CYCLOBENZAPRINE [Suspect]
     Dosage: UNK
     Route: 048

REACTIONS (1)
  - Completed suicide [Fatal]
